FAERS Safety Report 8482520-6 (Version None)
Quarter: 2012Q3

REPORT INFORMATION
  Report Type: 
  Country: None (occurrence: None)
  Receive Date: 20120702
  Receipt Date: 20120620
  Transmission Date: 20120928
  Serious: Yes (Hospitalization, Other)
  Sender: FDA-Public Use
  Company Number: US-MYLANLABS-2009AC000335

PATIENT
  Age: 61 Year
  Sex: Female
  Weight: 72.58 kg

DRUGS (75)
  1. CLARINEX /01202601/ [Concomitant]
  2. ZOCOR [Concomitant]
  3. LABETALOL HCL [Concomitant]
  4. ATENOLOL [Concomitant]
  5. AVELOX [Concomitant]
  6. WELLBUTRIN [Concomitant]
  7. LEVAQUIN [Concomitant]
  8. HYDROCODONE [Concomitant]
  9. ASPIRIN [Concomitant]
  10. COUMADIN [Concomitant]
     Dosage: AS DIRECTED
  11. GUAIFENESIN [Concomitant]
  12. PHENERGAN HCL [Concomitant]
  13. VITAMIN D [Concomitant]
  14. CLINDAMYCIN [Concomitant]
  15. FLEXTRA [Concomitant]
  16. DRISDOL [Concomitant]
  17. ISOSORBIDE [Concomitant]
  18. FLAGYL [Concomitant]
  19. TYLENOL W/ CODEINE [Concomitant]
  20. FLUOXETINE [Concomitant]
  21. HYDROCHLOROTHIAZIDE [Concomitant]
  22. PROZAC [Concomitant]
  23. DOXYCYCLINE HYCLATE [Concomitant]
     Dosage: FOR 10 DAYS
     Route: 048
  24. PRILOSEC [Concomitant]
  25. IRON SULFATETHIAMIN COMPOUND TAB [Concomitant]
  26. ALBUTEROL [Concomitant]
  27. TRILYTE [Concomitant]
  28. CLARITHROMYCIN [Concomitant]
  29. ACETYLCYSTEINE [Concomitant]
  30. RANITIDINE [Concomitant]
  31. VITAMIN B COMPLEX CAP [Concomitant]
  32. PRAVACHOL [Concomitant]
  33. VIBRAMYCIN [Concomitant]
  34. PROMETHAZINE [Concomitant]
  35. CYPROHEPTADINE HCL [Concomitant]
  36. LASIX [Concomitant]
  37. NORVASC [Concomitant]
  38. BISACODYL [Concomitant]
  39. METRONIDAZOL /00012501/ [Concomitant]
  40. ALLEGRA [Concomitant]
  41. SPIRIVA [Concomitant]
  42. MUCINEX [Concomitant]
  43. ATENOLOL [Concomitant]
  44. AMLODIPINE [Concomitant]
  45. WARFARIN SODIUM [Concomitant]
  46. SIMVASTATIN [Concomitant]
  47. IBUPROFEN [Concomitant]
  48. CYCLOBENZAPRINE [Concomitant]
  49. ZITHROMAX [Concomitant]
  50. NALEX [Concomitant]
  51. CENTRUM [Concomitant]
  52. LORAZEPAM [Concomitant]
  53. MULTI-VITAMIN [Concomitant]
  54. ADVAIR DISKUS 100/50 [Concomitant]
     Dosage: 250-50 MCG/DOSE BID
  55. PRAVASTATIN [Concomitant]
  56. ACETAMINOPHEN AND OXYCODONE HCL [Concomitant]
  57. SULFACETAMIDE SODIUM [Concomitant]
  58. PROPOXYPHENE NAPSYLATE W/ ACETAMINOPHEN [Concomitant]
  59. MICARDIS [Concomitant]
  60. ALPRAZOLAM [Concomitant]
  61. SULFAMETHOXAZOLE [Concomitant]
  62. FUROSEMIDE [Concomitant]
  63. OMEPRAZOLE [Concomitant]
  64. EFFEXOR [Concomitant]
  65. ACCUPRIL [Concomitant]
  66. NAPROXEN [Concomitant]
  67. BEXTRA /01400702/ [Concomitant]
  68. BIAXIN [Concomitant]
  69. ZESTRIL [Concomitant]
  70. DIGOXIN [Suspect]
     Route: 048
     Dates: start: 20030731, end: 20080601
  71. COMBIVENT [Concomitant]
     Dosage: (1-2) 103-18 MCG/ACUTATION Q4 TO 6 H PRN
  72. LISINOPRIL [Concomitant]
  73. CHANTIX [Concomitant]
  74. ALDEX [Concomitant]
  75. ISONIAZID [Concomitant]

REACTIONS (89)
  - BRADYCARDIA [None]
  - ABDOMINAL PAIN [None]
  - ACTIVITIES OF DAILY LIVING IMPAIRED [None]
  - ANAEMIA [None]
  - ANKLE BRACHIAL INDEX DECREASED [None]
  - CHRONIC OBSTRUCTIVE PULMONARY DISEASE [None]
  - COMPUTERISED TOMOGRAM ABNORMAL [None]
  - ULTRASOUND DOPPLER ABNORMAL [None]
  - EARLY SATIETY [None]
  - PERONEAL NERVE PALSY [None]
  - NUCLEAR MAGNETIC RESONANCE IMAGING ABNORMAL [None]
  - TACHYCARDIA [None]
  - TREATMENT NONCOMPLIANCE [None]
  - ILL-DEFINED DISORDER [None]
  - HEART RATE IRREGULAR [None]
  - INTERNATIONAL NORMALISED RATIO INCREASED [None]
  - HYPONATRAEMIA [None]
  - ALOPECIA [None]
  - EMBOLISM [None]
  - CORONARY ARTERY DISEASE [None]
  - FLUID RETENTION [None]
  - HYPOAESTHESIA [None]
  - RHINORRHOEA [None]
  - ATRIAL FLUTTER [None]
  - LEFT VENTRICULAR HYPERTROPHY [None]
  - PLEURAL EFFUSION [None]
  - ARTERIAL STENOSIS [None]
  - BACK PAIN [None]
  - BREATH SOUNDS ABNORMAL [None]
  - DYSLIPIDAEMIA [None]
  - PAIN IN EXTREMITY [None]
  - MOANING [None]
  - TOBACCO ABUSE [None]
  - PERIPHERAL VASCULAR DISORDER [None]
  - SINUS BRADYCARDIA [None]
  - SINUSITIS [None]
  - BASEDOW'S DISEASE [None]
  - ECONOMIC PROBLEM [None]
  - TREMOR [None]
  - DYSPNOEA [None]
  - ALCOHOL WITHDRAWAL SYNDROME [None]
  - RENAL FAILURE CHRONIC [None]
  - GASTRITIS [None]
  - GASTROOESOPHAGEAL REFLUX DISEASE [None]
  - CEREBROVASCULAR ACCIDENT [None]
  - BALANCE DISORDER [None]
  - CARDIAC MURMUR [None]
  - TUBERCULIN TEST POSITIVE [None]
  - COUGH [None]
  - HYPERTENSION [None]
  - EAR PAIN [None]
  - CARDIAC FAILURE CONGESTIVE [None]
  - ALCOHOL ABUSE [None]
  - ARTERIOSCLEROSIS [None]
  - ECHOCARDIOGRAM ABNORMAL [None]
  - VENTRICULAR EXTRASYSTOLES [None]
  - VOMITING [None]
  - DEHYDRATION [None]
  - FATIGUE [None]
  - WEIGHT DECREASED [None]
  - ATRIAL FIBRILLATION [None]
  - THALAMIC INFARCTION [None]
  - SENSORY DISTURBANCE [None]
  - URINARY INCONTINENCE [None]
  - WHEEZING [None]
  - DIARRHOEA [None]
  - SINUS CONGESTION [None]
  - PALPITATIONS [None]
  - DECREASED APPETITE [None]
  - HEMIPARESIS [None]
  - ARTERIOGRAM ABNORMAL [None]
  - DEPRESSION [None]
  - ELECTROCARDIOGRAM AMBULATORY ABNORMAL [None]
  - INTERVERTEBRAL DISC SPACE NARROWING [None]
  - PARAESTHESIA [None]
  - ASTHENIA [None]
  - INJURY [None]
  - TOXICITY TO VARIOUS AGENTS [None]
  - NAUSEA [None]
  - BRONCHITIS [None]
  - HYPERTHYROIDISM [None]
  - BUNDLE BRANCH BLOCK LEFT [None]
  - CARDIAC VALVE DISEASE [None]
  - ANGIOGRAM ABNORMAL [None]
  - BRONCHIECTASIS [None]
  - HELICOBACTER TEST POSITIVE [None]
  - FACIAL WASTING [None]
  - UPPER RESPIRATORY TRACT INFECTION [None]
  - CHEST X-RAY ABNORMAL [None]
